FAERS Safety Report 5383522-9 (Version None)
Quarter: 2007Q3

REPORT INFORMATION
  Report Type: 
  Country: None (occurrence: None)
  Receive Date: 20070706
  Receipt Date: 20070621
  Transmission Date: 20080115
  Serious: Yes (Hospitalization)
  Sender: FDA-Public Use
  Company Number: 2007RR-08184

PATIENT
  Age: 35 Year
  Sex: Male

DRUGS (2)
  1. ACETAMINOPHEN [Suspect]
     Dosage: 2.5 G, UNK, ORAL
     Route: 048
  2. OLANZAPINE [Suspect]
     Dosage: 840 MG, UNK, UNKNOWN

REACTIONS (6)
  - CLONUS [None]
  - DYSARTHRIA [None]
  - FALL [None]
  - HEART RATE INCREASED [None]
  - OVERDOSE [None]
  - SEROTONIN SYNDROME [None]
